FAERS Safety Report 21566611 (Version 1)
Quarter: 2022Q4

REPORT INFORMATION
  Report Type: Spontaneous
  Country: US (occurrence: US)
  Receive Date: 20221108
  Receipt Date: 20221108
  Transmission Date: 20230113
  Serious: No
  Sender: FDA-Public Use
  Company Number: US-PFIZER INC-PV202200097236

PATIENT

DRUGS (2)
  1. VORICONAZOLE [Suspect]
     Active Substance: VORICONAZOLE
     Indication: Scedosporium infection
     Dosage: UNK
  2. TERBINAFINE [Suspect]
     Active Substance: TERBINAFINE
     Indication: Scedosporium infection
     Dosage: UNK

REACTIONS (1)
  - Drug ineffective [Unknown]
